FAERS Safety Report 23805651 (Version 1)
Quarter: 2024Q2

REPORT INFORMATION
  Report Type: Spontaneous
  Country: CN (occurrence: CN)
  Receive Date: 20240502
  Receipt Date: 20240502
  Transmission Date: 20240716
  Serious: No
  Sender: FDA-Public Use
  Company Number: CN-ALKEM LABORATORIES LIMITED-CN-ALKEM-2023-11975

PATIENT
  Age: 35 Year

DRUGS (1)
  1. LIDOCAINE [Suspect]
     Active Substance: LIDOCAINE
     Indication: Complex regional pain syndrome
     Dosage: 0.5 MILLILITRE PER KILOGRAM (DORSAL VEIN OF THE WRIST)
     Route: 042

REACTIONS (1)
  - Dizziness [Unknown]
